FAERS Safety Report 5644698-9 (Version None)
Quarter: 2008Q1

REPORT INFORMATION
  Report Type: 
  Country: None (occurrence: None)
  Receive Date: 20080229
  Receipt Date: 20070531
  Transmission Date: 20080703
  Serious: Yes (Other)
  Sender: FDA-Public Use
  Company Number: A0653961A

PATIENT

DRUGS (1)
  1. VALTREX [Suspect]
     Indication: GENITAL HERPES

REACTIONS (1)
  - LEUKOPENIA [None]
